FAERS Safety Report 8295888-0 (Version None)
Quarter: 2012Q2

REPORT INFORMATION
  Report Type: 
  Country: None (occurrence: None)
  Receive Date: 20120417
  Receipt Date: 20120417
  Transmission Date: 20120825
  Serious: Yes (Hospitalization)
  Sender: FDA-Public Use
  Company Number: None

PATIENT
  Age: 63 Year
  Sex: Male
  Weight: 82.7 kg

DRUGS (3)
  1. AMITRIPTYLINE HCL [Suspect]
     Indication: DEPRESSION
     Dosage: 150 MG AT BEDTIME PO
     Route: 048
     Dates: start: 20110920, end: 20120123
  2. ZOLPIDEM [Suspect]
     Indication: INSOMNIA
     Dosage: 10 MG AT BEDTIME PO
     Route: 048
     Dates: start: 20111228, end: 20120123
  3. ZOLPIDEM [Suspect]
     Indication: POST-TRAUMATIC STRESS DISORDER
     Dosage: 10 MG AT BEDTIME PO
     Route: 048
     Dates: start: 20111228, end: 20120123

REACTIONS (12)
  - ECCHYMOSIS [None]
  - ELECTROCARDIOGRAM QT PROLONGED [None]
  - HEADACHE [None]
  - CONFUSIONAL STATE [None]
  - BALANCE DISORDER [None]
  - FALL [None]
  - PAIN [None]
  - DIZZINESS [None]
  - LOSS OF CONSCIOUSNESS [None]
  - NAUSEA [None]
  - VOMITING [None]
  - DECREASED APPETITE [None]
